FAERS Safety Report 9054313 (Version 1)
Quarter: 2013Q1

REPORT INFORMATION
  Report Type: Spontaneous
  Country: US (occurrence: US)
  Receive Date: 20130208
  Receipt Date: 20130208
  Transmission Date: 20140127
  Serious: Yes (Death)
  Sender: FDA-Public Use
  Company Number: CHPA2013US002546

PATIENT
  Age: 57 Year
  Sex: Female

DRUGS (4)
  1. DIPHENHYDRAMINE [Suspect]
     Dosage: UNK, UNK
     Route: 048
  2. LAMOTRIGINE [Suspect]
     Dosage: UNK, UNK
     Route: 048
  3. ESCITALOPRAM [Suspect]
     Dosage: UNK, UNK
     Route: 048
  4. ARIPIPRAZOLE [Suspect]
     Dosage: UNK, UNK
     Route: 048

REACTIONS (1)
  - Completed suicide [Fatal]
